FAERS Safety Report 8309779-X (Version None)
Quarter: 2012Q2

REPORT INFORMATION
  Report Type: 
  Country: None (occurrence: None)
  Receive Date: 20120425
  Receipt Date: 20120417
  Transmission Date: 20120825
  Serious: Yes (Hospitalization, Other)
  Sender: FDA-Public Use
  Company Number: PHEH2012US004320

PATIENT
  Sex: Female
  Weight: 67.6 kg

DRUGS (6)
  1. HYDREA [Concomitant]
     Dosage: 2 DF, UNK
     Route: 048
  2. ZOLOFT [Concomitant]
     Dosage: 1 DF, DAILY
     Route: 048
  3. DOCUSATE CALCIUM [Concomitant]
     Dosage: 1 DF, DAILY
     Route: 048
  4. EXJADE [Suspect]
     Dosage: 1500 MG DAILY
     Route: 048
     Dates: end: 20120313
  5. FOLVITE [Concomitant]
     Dosage: 1 DF, DAILY
     Route: 048
  6. EXJADE [Suspect]
     Indication: SICKLE CELL ANAEMIA
     Dosage: 500 MG, BID
     Route: 048
     Dates: start: 20080619

REACTIONS (12)
  - PNEUMONIA [None]
  - FATIGUE [None]
  - BLOOD PRESSURE INCREASED [None]
  - RENAL DISORDER [None]
  - HAEMOGLOBIN DECREASED [None]
  - SICKLE CELL ANAEMIA WITH CRISIS [None]
  - PYREXIA [None]
  - SERUM FERRITIN INCREASED [None]
  - EJECTION FRACTION DECREASED [None]
  - HEADACHE [None]
  - PAIN [None]
  - CHILLS [None]
